FAERS Safety Report 24427845 (Version 1)
Quarter: 2024Q4

REPORT INFORMATION
  Report Type: Spontaneous
  Country: DK (occurrence: DK)
  Receive Date: 20241011
  Receipt Date: 20241011
  Transmission Date: 20250114
  Serious: Yes (Hospitalization, Other)
  Sender: NOVARTIS
  Company Number: DK-002147023-NVSC2024DK196482

PATIENT
  Sex: Female

DRUGS (1)
  1. ILARIS [Suspect]
     Active Substance: CANAKINUMAB
     Indication: Autoinflammation with infantile enterocolitis
     Dosage: UNK
     Route: 065

REACTIONS (2)
  - Seizure [Unknown]
  - Off label use [Unknown]
